FAERS Safety Report 25008831 (Version 2)
Quarter: 2025Q2

REPORT INFORMATION
  Report Type: Spontaneous
  Country: US (occurrence: US)
  Receive Date: 20250225
  Receipt Date: 20250605
  Transmission Date: 20250716
  Serious: No
  Sender: BLUEPRINT MEDICINES
  Company Number: US-Blueprint Medicines Corporation-2025-AER-00355

PATIENT
  Age: 40 Year
  Sex: Female

DRUGS (24)
  1. AYVAKIT [Suspect]
     Active Substance: AVAPRITINIB
     Indication: Indolent systemic mastocytosis
     Route: 048
     Dates: start: 20240815
  2. ADDERALL [Concomitant]
     Active Substance: AMPHETAMINE ASPARTATE\AMPHETAMINE SULFATE\DEXTROAMPHETAMINE SACCHARATE\DEXTROAMPHETAMINE SULFATE
     Indication: Product used for unknown indication
     Route: 065
  3. ALPHA LIPOIC ACID [Concomitant]
     Active Substance: .ALPHA.-LIPOIC ACID
     Indication: Product used for unknown indication
     Route: 065
  4. AMOXICILLIN [Concomitant]
     Active Substance: AMOXICILLIN
     Indication: Product used for unknown indication
     Route: 065
  5. BENADRYL [Concomitant]
     Active Substance: DIPHENHYDRAMINE HYDROCHLORIDE
     Indication: Product used for unknown indication
     Route: 065
  6. FAMOTIDINE [Concomitant]
     Active Substance: FAMOTIDINE
     Indication: Product used for unknown indication
     Route: 065
  7. FLUOXETINE [Concomitant]
     Active Substance: FLUOXETINE HYDROCHLORIDE
     Indication: Product used for unknown indication
     Route: 065
  8. GABAPENTIN [Concomitant]
     Active Substance: GABAPENTIN
     Indication: Product used for unknown indication
     Route: 065
  9. VITAMIN C [Concomitant]
     Active Substance: ASCORBIC ACID
     Indication: Product used for unknown indication
     Route: 065
  10. IRON [Concomitant]
     Active Substance: IRON
     Indication: Product used for unknown indication
     Route: 065
  11. LEVOTHYROXINE [Concomitant]
     Active Substance: LEVOTHYROXINE
     Indication: Product used for unknown indication
     Route: 065
  12. METHADONE [Concomitant]
     Active Substance: METHADONE HYDROCHLORIDE
     Indication: Product used for unknown indication
     Route: 065
  13. METHYLCOBALAMIN [Concomitant]
     Active Substance: METHYLCOBALAMIN
     Indication: Product used for unknown indication
     Route: 065
  14. LEVOMEFOLATE CALCIUM [Concomitant]
     Active Substance: LEVOMEFOLATE CALCIUM
     Indication: Product used for unknown indication
     Route: 065
  15. MONTELUKAST [Concomitant]
     Active Substance: MONTELUKAST
     Indication: Product used for unknown indication
     Route: 065
  16. NORTRIPTYLINE [Concomitant]
     Active Substance: NORTRIPTYLINE
     Indication: Product used for unknown indication
     Route: 065
  17. PROBIOTICS NOS [Concomitant]
     Active Substance: PROBIOTICS NOS
     Indication: Product used for unknown indication
     Route: 065
  18. PSYLLIUM HUSK [Concomitant]
     Active Substance: PSYLLIUM HUSK
     Indication: Product used for unknown indication
     Route: 065
  19. QUERCETIN [Concomitant]
     Active Substance: QUERCETIN
     Indication: Product used for unknown indication
     Route: 065
  20. HERBALS\SAW PALMETTO [Concomitant]
     Active Substance: HERBALS\SAW PALMETTO
     Indication: Product used for unknown indication
     Route: 065
  21. SEROQUEL [Concomitant]
     Active Substance: QUETIAPINE FUMARATE
     Indication: Product used for unknown indication
     Route: 065
  22. TART CHERRY EXTRACT [Concomitant]
     Indication: Product used for unknown indication
     Route: 065
  23. ZOFRAN [Concomitant]
     Active Substance: ONDANSETRON HYDROCHLORIDE
     Indication: Product used for unknown indication
     Route: 065
  24. ZYRTEC [Concomitant]
     Active Substance: CETIRIZINE HYDROCHLORIDE
     Indication: Product used for unknown indication
     Route: 065

REACTIONS (6)
  - Constipation [Unknown]
  - Diarrhoea [Unknown]
  - Nausea [Unknown]
  - Fatigue [Unknown]
  - Bone pain [Unknown]
  - Drug ineffective [Unknown]
